FAERS Safety Report 14044191 (Version 6)
Quarter: 2019Q1

REPORT INFORMATION
  Report Type: Report from Study
  Country: AT (occurrence: AT)
  Receive Date: 20171004
  Receipt Date: 20190223
  Transmission Date: 20190417
  Serious: Yes (Life-Threatening, Hospitalization, Other)
  Sender: FDA-Public Use
  Company Number: AT-AMGEN-AUTNI2017150425

PATIENT
  Age: 82 Year
  Sex: Female

DRUGS (9)
  1. ETANERCEPT [Suspect]
     Active Substance: ETANERCEPT
     Indication: RHEUMATOID ARTHRITIS
     Dosage: 50 MG, UNK
     Route: 058
     Dates: start: 200812, end: 201611
  2. CEREBOKAN [Concomitant]
     Active Substance: GINKGO
     Dosage: 80 MG, QD,  1-0-0
     Route: 048
  3. FOSAMAX [Concomitant]
     Active Substance: ALENDRONATE SODIUM
     Indication: OSTEOPOROSIS
     Dosage: 70 MG, 1X/DAY
     Route: 048
     Dates: start: 201208, end: 201503
  4. CANDESARTAN CILEXETIL-HYDROCHLOROTHIAZIDE [Concomitant]
     Active Substance: CANDESARTAN CILEXETIL\HYDROCHLOROTHIAZIDE
     Dosage: 1 DF, QD
  5. PANTIP [Concomitant]
     Active Substance: PANTOPRAZOLE SODIUM
     Dosage: 50 MG, 1X/DAY
     Route: 048
  6. DAFLON [Concomitant]
     Dosage: 500 MG, QD, 1-0-0
     Route: 048
  7. MELOXICAM. [Concomitant]
     Active Substance: MELOXICAM
     Indication: RHEUMATOID ARTHRITIS
     Dosage: 15 MG, UNK
     Route: 048
     Dates: start: 201503
  8. THROMBO ASS [Concomitant]
     Active Substance: ASPIRIN
     Dosage: 100 MG, QD
  9. NEBILAN [Concomitant]
     Active Substance: NEBIVOLOL HYDROCHLORIDE
     Dosage: 2.5 MG, 1X/DAY, 1(1 HALF 5MG TABLET)-0-0
     Route: 048

REACTIONS (2)
  - Endometrial cancer metastatic [Recovered/Resolved]
  - Metastases to lymph nodes [Recovered/Resolved]
